FAERS Safety Report 10879863 (Version 1)
Quarter: 2015Q1

REPORT INFORMATION
  Report Type: Spontaneous
  Country: US (occurrence: US)
  Receive Date: 20150302
  Receipt Date: 20150302
  Transmission Date: 20150721
  Serious: No
  Sender: FDA-Public Use
  Company Number: US-PFIZER INC-2015068572

PATIENT
  Age: 63 Year
  Sex: Female

DRUGS (1)
  1. SUTENT [Suspect]
     Active Substance: SUNITINIB MALATE
     Indication: RENAL CANCER
     Dosage: 25 MG, CYCLIC (25 MG ONCE DAILY 4 WEEKS THEN 2 WEEKS OFF)
     Route: 048

REACTIONS (4)
  - Skin induration [Recovered/Resolved]
  - Pain in extremity [Recovered/Resolved]
  - Pain of skin [Recovered/Resolved]
  - Skin exfoliation [Recovered/Resolved]
